FAERS Safety Report 4553096-0 (Version None)
Quarter: 2005Q1

REPORT INFORMATION
  Report Type: 
  Country: None (occurrence: None)
  Receive Date: 20050113
  Receipt Date: 20050103
  Transmission Date: 20050727
  Serious: Yes (Hospitalization)
  Sender: FDA-Public Use
  Company Number: 2005005184

PATIENT
  Age: 25 Year
  Sex: Male

DRUGS (3)
  1. CEFPODOXIME PROXETIL SUSPENSION (CEFPODOXIME PROXETIL) [Suspect]
     Indication: INTERSTITIAL LUNG DISEASE
     Dosage: 3 GRAM, INTRAVENOUS
     Route: 042
     Dates: start: 20040609, end: 20040611
  2. ERYTHROMYCIN [Suspect]
     Indication: INTERSTITIAL LUNG DISEASE
     Dosage: 3 GRAM (DAILY), INTRAVENOUS
     Route: 042
     Dates: start: 20040609, end: 20040611
  3. HEPARIN-FRACTION, SODIUM SALT (HEPARIN-FRACTION, SODIUM SALT) [Concomitant]

REACTIONS (3)
  - AGGRESSION [None]
  - CONFUSIONAL STATE [None]
  - LEGIONELLA INFECTION [None]
